FAERS Safety Report 8614653-5 (Version None)
Quarter: 2012Q3

REPORT INFORMATION
  Report Type: 
  Country: None (occurrence: None)
  Receive Date: 20120823
  Receipt Date: 20120821
  Transmission Date: 20120928
  Serious: Yes (Other)
  Sender: FDA-Public Use
  Company Number: PHHY2012CN058915

PATIENT
  Age: 73 Year
  Sex: Male

DRUGS (1)
  1. DIOVAN [Suspect]
     Indication: HYPERTENSION
     Dosage: 80 MG, QD
     Route: 048
     Dates: start: 20120701

REACTIONS (4)
  - HYPOTENSION [None]
  - DIZZINESS [None]
  - OEDEMA [None]
  - ARRHYTHMIA [None]
